FAERS Safety Report 22083608 (Version 1)
Quarter: 2023Q1

REPORT INFORMATION
  Report Type: Spontaneous
  Country: US (occurrence: US)
  Receive Date: 20230310
  Receipt Date: 20230310
  Transmission Date: 20230418
  Serious: Yes (Other)
  Sender: FDA-Public Use
  Company Number: US-PFIZER INC-PV202300027935

PATIENT
  Age: 69 Year
  Sex: Female
  Weight: 69.388 kg

DRUGS (2)
  1. CIPRO [Suspect]
     Active Substance: CIPROFLOXACIN HYDROCHLORIDE
     Indication: Diverticulitis
     Dosage: 500 MG, BID
     Route: 048
     Dates: start: 20230131, end: 20230210
  2. FLAGYL [Suspect]
     Active Substance: METRONIDAZOLE\METRONIDAZOLE HYDROCHLORIDE
     Indication: Diverticulitis
     Dosage: 500 MG, QD
     Route: 048
     Dates: start: 20230131, end: 20230204

REACTIONS (3)
  - Abdominal pain [Recovered/Resolved]
  - Periorbital swelling [Recovered/Resolved]
  - Feeling abnormal [Recovered/Resolved]

NARRATIVE: CASE EVENT DATE: 20230201
